FAERS Safety Report 9155241 (Version 1)
Quarter: 2013Q1

REPORT INFORMATION
  Report Type: Spontaneous
  Country: RO (occurrence: None)
  Receive Date: 20130208
  Receipt Date: 20130208
  Transmission Date: 20140127
  Serious: No
  Sender: FDA-Public Use
  Company Number: 1301ROMO10688

PATIENT
  Sex: Female

DRUGS (1)
  1. CEDAX [Suspect]
     Indication: ESCHERICHIA INFECTION
     Route: 048
     Dates: start: 20121016

REACTIONS (1)
  - Drug ineffective [None]
